FAERS Safety Report 9233434 (Version 1)
Quarter: 2013Q2

REPORT INFORMATION
  Report Type: Spontaneous
  Country: US (occurrence: US)
  Receive Date: 20130416
  Receipt Date: 20130416
  Transmission Date: 20140414
  Serious: No
  Sender: FDA-Public Use
  Company Number: US-009507513-1304USA003482

PATIENT
  Age: 60 Year
  Sex: Male

DRUGS (8)
  1. ZETIA [Suspect]
     Indication: BLOOD CHOLESTEROL INCREASED
     Dosage: 10 MG, QD
     Route: 048
     Dates: start: 2010
  2. CRESTOR [Concomitant]
     Indication: BLOOD CHOLESTEROL INCREASED
     Dosage: UNK
     Dates: start: 2010
  3. LOVAZA [Concomitant]
  4. FINASTERIDE [Concomitant]
     Route: 048
  5. DIOVAN HCT [Concomitant]
  6. SINGULAIR [Concomitant]
     Route: 048
  7. PROAIR (ALBUTEROL SULFATE) [Concomitant]
  8. SYMBICORT [Concomitant]

REACTIONS (5)
  - Discomfort [Unknown]
  - Liver disorder [Unknown]
  - Chest discomfort [Unknown]
  - Abdominal discomfort [Unknown]
  - Abdominal pain [Unknown]
